FAERS Safety Report 4710589-0 (Version None)
Quarter: 2005Q3

REPORT INFORMATION
  Report Type: 
  Country: None (occurrence: None)
  Receive Date: 20050707
  Receipt Date: 20050616
  Transmission Date: 20060218
  Serious: Yes (Hospitalization)
  Sender: FDA-Public Use
  Company Number: FR_050606655

PATIENT
  Age: 77 Year
  Sex: Female

DRUGS (3)
  1. FORSTEO (TERIPARATIDE) [Suspect]
     Indication: OSTEOPOROSIS
     Dosage: 20 UG DAY
     Dates: start: 20050214, end: 20050616
  2. CIRKAN [Concomitant]
  3. ANTIHYPERTENSIVE DRUG [Concomitant]

REACTIONS (1)
  - CONVULSION [None]
